FAERS Safety Report 7779138-7 (Version None)
Quarter: 2011Q3

REPORT INFORMATION
  Report Type: 
  Country: None (occurrence: None)
  Receive Date: 20110926
  Receipt Date: 20110912
  Transmission Date: 20111222
  Serious: Yes (Death)
  Sender: FDA-Public Use
  Company Number: US-MYLANLABS-2008S1015870

PATIENT
  Age: 35 Year
  Sex: Female
  Weight: 93.44 kg

DRUGS (16)
  1. VICODIN ES [Concomitant]
     Indication: PAIN
     Dosage: 7.5MG/750MG
     Route: 048
  2. AMPHETAMINE AND DEXTROAMPHETAMINE SALTS [Concomitant]
  3. ADVAIR DISKUS 100/50 [Concomitant]
     Route: 055
  4. MUCOMYST [Concomitant]
     Dosage: 5ML NEBULIZED
     Route: 055
  5. METHOTREXATE [Concomitant]
  6. VITAMIN B-12 [Concomitant]
  7. AMOXICILLIN [Concomitant]
  8. NICOTINE [Concomitant]
     Route: 062
  9. DURAGESIC-100 [Suspect]
     Indication: PAIN
     Dosage: CHANGE PATCHES Q3D
     Route: 062
  10. ADDERALL 5 [Concomitant]
     Route: 062
  11. ALBUTEROL SULFATE [Concomitant]
     Route: 055
  12. FLUCONAZOLE [Concomitant]
  13. REMICADE [Concomitant]
  14. ATARAX [Concomitant]
  15. FENTANYL-100 [Suspect]
     Indication: PAIN
     Dosage: CHANGE PATCHES Q3D
     Route: 062
  16. ISONIAZID [Concomitant]
     Indication: TUBERCULOSIS

REACTIONS (4)
  - RESPIRATORY ARREST [None]
  - MULTIPLE DRUG OVERDOSE [None]
  - TOXICITY TO VARIOUS AGENTS [None]
  - CARDIAC ARREST [None]
